FAERS Safety Report 6667812-5 (Version None)
Quarter: 2010Q2

REPORT INFORMATION
  Report Type: 
  Country: None (occurrence: None)
  Receive Date: 20100405
  Receipt Date: 20100305
  Transmission Date: 20101027
  Serious: No
  Sender: FDA-Public Use
  Company Number: US-BAYER-201012865BCC

PATIENT
  Age: 65 Year
  Sex: Male
  Weight: 84 kg

DRUGS (5)
  1. ALEVE (CAPLET) [Suspect]
     Indication: OSTEOARTHRITIS
     Dosage: UNIT DOSE: 220 MG
     Route: 048
     Dates: start: 20090301
  2. ASPIRIN [Suspect]
     Indication: OSTEOARTHRITIS
     Route: 048
  3. ONE A DAY MEN'S HEALTH [Concomitant]
  4. ONE A DAY MAXIMUM [Concomitant]
  5. LEVOTHYROXINE SODIUM [Concomitant]

REACTIONS (2)
  - DRUG HYPERSENSITIVITY [None]
  - URTICARIA [None]
